FAERS Safety Report 17055139 (Version 2)
Quarter: 2020Q1

REPORT INFORMATION
  Report Type: Spontaneous
  Country: FR (occurrence: FR)
  Receive Date: 20191120
  Receipt Date: 20200326
  Transmission Date: 20200409
  Serious: Yes (Hospitalization)
  Sender: FDA-Public Use
  Company Number: FR-ALSI-201900476

PATIENT
  Age: 20 Year
  Sex: Female

DRUGS (1)
  1. NITROUS OXIDE. [Suspect]
     Active Substance: NITROUS OXIDE
     Indication: SUBSTANCE ABUSER
     Route: 055

REACTIONS (2)
  - Polyneuropathy [Not Recovered/Not Resolved]
  - Substance abuser [Not Recovered/Not Resolved]
